FAERS Safety Report 7416981-8 (Version None)
Quarter: 2011Q2

REPORT INFORMATION
  Report Type: 
  Country: None (occurrence: None)
  Receive Date: 20110407
  Receipt Date: 20110323
  Transmission Date: 20111010
  Serious: Yes (Hospitalization)
  Sender: FDA-Public Use
  Company Number: 02100-JPN-07-0114

PATIENT
  Age: 62 Year
  Sex: Male
  Weight: 60.5 kg

DRUGS (11)
  1. ENALAPRIL MALEATE [Concomitant]
  2. BLOPRESS (CANDESARTAN CILEXETIL) TABLET [Concomitant]
  3. COMELIAN (DILAZEP DIHYDROCHLORIDE) TABLET [Concomitant]
  4. BAYASPIRIN (ACETYLSALICYLIC ACID) TABLET, 100 MG MILLIGRAM(S) [Suspect]
     Indication: CEREBRAL INFARCTION
     Dosage: 100 MG MILLIGRAM(S), QD, ORAL
     Route: 048
     Dates: end: 20070214
  5. ACTOS [Concomitant]
  6. SELBEX (TEPRENONE) CAPSULE [Concomitant]
  7. AMARYL [Concomitant]
  8. PLETAL [Suspect]
     Indication: LACUNAR INFARCTION
     Dosage: 100 MG MILLIGRAM(S), BID, ORAL;
     Route: 048
     Dates: start: 20070222
  9. PLETAL [Suspect]
     Indication: LACUNAR INFARCTION
     Dosage: 100 MG MILLIGRAM(S), BID, ORAL;
     Route: 048
     Dates: start: 20060921, end: 20070214
  10. ADALAT-CR (NIFEDIPINE) TABLET [Concomitant]
  11. BASEN (VOGLIBOSE) ORODISPERSIBLE TABLET [Concomitant]

REACTIONS (3)
  - GASTRIC ULCER HAEMORRHAGE [None]
  - BLOOD PRESSURE DECREASED [None]
  - ANAEMIA [None]
